FAERS Safety Report 5641865-5 (Version None)
Quarter: 2008Q1

REPORT INFORMATION
  Report Type: 
  Country: None (occurrence: None)
  Receive Date: 20080227
  Receipt Date: 20071106
  Transmission Date: 20080703
  Serious: No
  Sender: FDA-Public Use
  Company Number: US-BOEHRINGER INGELHEIM GMBH, GERMANY-2007-BP-24072BP

PATIENT
  Age: 46 Year
  Sex: Female

DRUGS (2)
  1. MOBIC [Suspect]
     Indication: ARTHRALGIA
     Route: 048
     Dates: start: 20071105, end: 20071105
  2. ADVIL [Concomitant]

REACTIONS (3)
  - EYE SWELLING [None]
  - OEDEMA MOUTH [None]
  - URTICARIA [None]
